FAERS Safety Report 8258782-7 (Version None)
Quarter: 2012Q2

REPORT INFORMATION
  Report Type: 
  Country: None (occurrence: None)
  Receive Date: 20120404
  Receipt Date: 20120328
  Transmission Date: 20120825
  Serious: Yes (Other)
  Sender: FDA-Public Use
  Company Number: US-JNJFOC-20120315125

PATIENT
  Age: 68 Year
  Sex: Female

DRUGS (9)
  1. MOTRIN IB [Suspect]
     Indication: ANTIINFLAMMATORY THERAPY
     Dosage: ^MAYBE A COUPLE EACH DAY^ AS NEEDED
     Route: 048
     Dates: start: 20100401, end: 20100101
  2. VITAMIN B COMPLEX CAP [Concomitant]
     Indication: ROUTINE HEALTH MAINTENANCE
     Route: 065
  3. MOTRIN IB [Suspect]
     Indication: PAIN
     Dosage: ^MAYBE A COUPLE EACH DAY^ AS NEEDED
     Route: 048
     Dates: start: 20100401, end: 20100101
  4. VIT-D3 [Concomitant]
     Indication: ROUTINE HEALTH MAINTENANCE
     Route: 065
  5. CITRACAL [Concomitant]
     Indication: ROUTINE HEALTH MAINTENANCE
     Route: 065
  6. AMLODIPINE [Concomitant]
     Indication: HYPERTENSION
     Route: 065
  7. MOTRIN IB [Suspect]
     Dosage: ^ABOUT EVERY 4 HOURS AROUND THE CLOCK^, FOR ONE WEEK
     Route: 048
     Dates: start: 20100401, end: 20100401
  8. MOTRIN IB [Suspect]
     Dosage: ^ABOUT EVERY 4 HOURS AROUND THE CLOCK^, FOR ONE WEEK
     Route: 048
     Dates: start: 20100401, end: 20100401
  9. LOVASTATIN [Concomitant]
     Indication: BLOOD CHOLESTEROL INCREASED
     Route: 065

REACTIONS (3)
  - OVERDOSE [None]
  - BUNION OPERATION [None]
  - GASTROINTESTINAL HAEMORRHAGE [None]
